FAERS Safety Report 17854005 (Version 5)
Quarter: 2022Q3

REPORT INFORMATION
  Report Type: Report from Study
  Country: TW (occurrence: None)
  Receive Date: 20200603
  Receipt Date: 20220818
  Transmission Date: 20221026
  Serious: Yes (Hospitalization)
  Sender: FDA-Public Use
  Company Number: TW-ROCHE-2606721

PATIENT
  Age: 53 Year
  Sex: Female
  Weight: 62 kg

DRUGS (5)
  1. TIRAGOLUMAB [Suspect]
     Active Substance: TIRAGOLUMAB
     Indication: Non-small cell lung cancer
     Dosage: DATE OF MOST RECENT DOSE: 27/FEB/2020 AT 12:05 PM
     Route: 042
     Dates: start: 20181214
  2. ATEZOLIZUMAB [Suspect]
     Active Substance: ATEZOLIZUMAB
     Indication: Non-small cell lung cancer
     Dosage: DATE OF MOST RECENT DOSE: 27/FEB/2020 AT 11:05 AM: 1200MG
     Route: 041
     Dates: start: 20181214
  3. IBUPROFEN [Concomitant]
     Active Substance: IBUPROFEN
     Indication: Bone pain
     Route: 048
     Dates: start: 20190221
  4. PREDNISOLONE [Concomitant]
     Active Substance: PREDNISOLONE
     Indication: Peritonitis
     Route: 042
     Dates: start: 20200414
  5. PREDNISOLONE [Concomitant]
     Active Substance: PREDNISOLONE
     Indication: Colitis
     Route: 048
     Dates: start: 20200326, end: 20200430

REACTIONS (1)
  - Mucosal ulceration [Not Recovered/Not Resolved]

NARRATIVE: CASE EVENT DATE: 20200520
